FAERS Safety Report 7357530-2 (Version None)
Quarter: 2011Q1

REPORT INFORMATION
  Report Type: 
  Country: None (occurrence: None)
  Receive Date: 20110317
  Receipt Date: 20090511
  Transmission Date: 20110831
  Serious: Yes (Death, Other)
  Sender: FDA-Public Use
  Company Number: US-BAYER-200921785NA

PATIENT
  Sex: Male
  Weight: 80.726 kg

DRUGS (26)
  1. CALCIUM CHLORIDE [Concomitant]
     Dosage: UNK
     Dates: start: 20050517, end: 20050517
  2. TRASYLOL [Suspect]
     Indication: CARDIAC ABLATION
  3. ZOCOR [Concomitant]
     Dosage: 40 MG/D, UNK
     Route: 048
  4. INSULIN [Concomitant]
     Dosage: UNK
     Route: 042
     Dates: start: 20050517, end: 20050517
  5. LISINOPRIL [Concomitant]
     Dosage: 40MG/DAY
     Route: 048
  6. HEPARIN [Concomitant]
     Dosage: UNK
     Dates: start: 20050517, end: 20050517
  7. ARICEPT [Concomitant]
  8. LASIX [Concomitant]
     Dosage: UNK
     Route: 042
  9. VALTREX [Concomitant]
     Dosage: 1GM/DAILY
     Route: 048
  10. MIDAZOLAM [Concomitant]
     Dosage: UNK
     Route: 042
     Dates: start: 20050517, end: 20050517
  11. LIDOCAINE [Concomitant]
     Dosage: UNK
     Dates: start: 20050517, end: 20050517
  12. NASACORT [Concomitant]
  13. ALBUTEROL [Concomitant]
     Dosage: Q6H
  14. FENTANYL [Concomitant]
     Dosage: UNK
     Route: 042
     Dates: start: 20050517, end: 20050517
  15. TRASYLOL [Suspect]
     Indication: AORTIC VALVE REPLACEMENT
     Dosage: 400ML FOLLOWED BY 50 CC/HOUR INFUSION
     Dates: start: 20050517, end: 20050517
  16. TRASYLOL [Suspect]
     Indication: MITRAL VALVE REPLACEMENT
  17. LASIX [Concomitant]
     Route: 048
  18. DIGOXIN [Concomitant]
     Dosage: 0.125 MG/D,
     Route: 048
  19. MAGNESIUM [Concomitant]
     Dosage: UNK
     Dates: start: 20050517, end: 20050517
  20. COUMADIN [Concomitant]
     Route: 048
  21. GENTAMICIN [Concomitant]
     Dosage: UNK
     Route: 042
     Dates: start: 20050517, end: 20050517
  22. WHOLE BLOOD [Concomitant]
     Dosage: 500 CC
  23. ADVAIR DISKUS 100/50 [Concomitant]
     Dosage: 50-250 (ONE PUFF BID)
  24. PROTAMINE SULFATE [Concomitant]
     Dosage: UNK
     Dates: start: 20050517, end: 20050517
  25. OXYCONTIN [Concomitant]
     Route: 048
  26. CARDIZEM [Concomitant]

REACTIONS (6)
  - DEATH [None]
  - RENAL FAILURE [None]
  - INJURY [None]
  - RENAL FAILURE ACUTE [None]
  - UNEVALUABLE EVENT [None]
  - PAIN [None]
